FAERS Safety Report 13733326 (Version 1)
Quarter: 2017Q3

REPORT INFORMATION
  Report Type: Spontaneous
  Country: US (occurrence: US)
  Receive Date: 20170707
  Receipt Date: 20170707
  Transmission Date: 20171127
  Serious: No
  Sender: FDA-Public Use
  Company Number: US-ROCHE-1537840

PATIENT
  Age: 87 Year
  Sex: Male

DRUGS (1)
  1. GAZYVA [Suspect]
     Active Substance: OBINUTUZUMAB
     Indication: CHRONIC LYMPHOCYTIC LEUKAEMIA
     Dosage: STOPPED IN RESPONSE TO SAE (AFTER 5-10 CC OF THE INFUSION).  RECHALLENGE IN 2 WEEKS.
     Route: 065
     Dates: start: 20150209

REACTIONS (1)
  - Hypertension [Unknown]
